FAERS Safety Report 4596534-X (Version None)
Quarter: 2005Q1

REPORT INFORMATION
  Report Type: 
  Country: None (occurrence: None)
  Receive Date: 20050302
  Receipt Date: 20050111
  Transmission Date: 20050727
  Serious: Yes (Hospitalization)
  Sender: FDA-Public Use
  Company Number: PHNR2005AU00455

PATIENT
  Age: 26 Year
  Sex: Male

DRUGS (13)
  1. ENDONE [Concomitant]
  2. LOSEC [Concomitant]
  3. ADALAT [Concomitant]
  4. THIAMINE [Concomitant]
  5. MULTI-B [Concomitant]
  6. OMEPRAZOLE [Concomitant]
  7. PREDNISONE [Concomitant]
  8. NOTEN [Concomitant]
     Dosage: 50 MG, BID
  9. NIFEDIPINE [Concomitant]
     Dosage: 50 MG, QD
  10. FOLIC ACID [Concomitant]
  11. BACTRIM DS [Concomitant]
     Dosage: 2 DAYS PER WEEK
  12. NEORAL [Suspect]
     Indication: BONE MARROW TRANSPLANT
     Dosage: 75 MG MANE, 100 MG NOCTE
     Dates: start: 19990101
  13. NEORAL [Suspect]
     Dosage: 75 MG MANE, 100 MG NOCTE

REACTIONS (4)
  - COORDINATION ABNORMAL [None]
  - DRUG INTERACTION [None]
  - DRUG LEVEL DECREASED [None]
  - LABYRINTHITIS [None]
